FAERS Safety Report 21514697 (Version 1)
Quarter: 2022Q4

REPORT INFORMATION
  Report Type: Spontaneous
  Country: CN (occurrence: CN)
  Receive Date: 20221027
  Receipt Date: 20221027
  Transmission Date: 20230112
  Serious: Yes (Death)
  Sender: FDA-Public Use
  Company Number: CN-PFIZER INC-PV202200082335

PATIENT
  Age: 74 Year
  Sex: Female

DRUGS (5)
  1. TIGECYCLINE [Suspect]
     Active Substance: TIGECYCLINE
     Indication: Pneumonia bacterial
     Dosage: UNK
     Dates: start: 20210312, end: 202103
  2. TIGECYCLINE [Suspect]
     Active Substance: TIGECYCLINE
     Dosage: UNK
     Dates: start: 202103, end: 20210405
  3. AVIBACTAM SODIUM\CEFTAZIDIME [Suspect]
     Active Substance: AVIBACTAM SODIUM\CEFTAZIDIME
     Indication: Pneumonia bacterial
     Dosage: UNK
     Dates: start: 202103, end: 202103
  4. MEROPENEM [Suspect]
     Active Substance: MEROPENEM
     Indication: Pneumonia bacterial
     Dosage: UNK
     Dates: start: 202103, end: 202103
  5. LEVOFLOXACIN [Suspect]
     Active Substance: LEVOFLOXACIN
     Indication: Pneumonia bacterial
     Dosage: UNK
     Dates: start: 202103, end: 202103

REACTIONS (3)
  - Drug resistance [Fatal]
  - Klebsiella infection [Fatal]
  - Sepsis [Fatal]

NARRATIVE: CASE EVENT DATE: 20210101
